FAERS Safety Report 7837132-1 (Version None)
Quarter: 2011Q4

REPORT INFORMATION
  Report Type: 
  Country: None (occurrence: None)
  Receive Date: 20111024
  Receipt Date: 20110110
  Transmission Date: 20120403
  Serious: No
  Sender: FDA-Public Use
  Company Number: US-ABBOTT-11P-163-0696403-00

PATIENT
  Sex: Female
  Weight: 69.008 kg

DRUGS (6)
  1. AMITRIPTYLINE HCL [Concomitant]
     Indication: PRODUCT USED FOR UNKNOWN INDICATION
  2. LISINOPRIL [Concomitant]
     Indication: BLOOD PRESSURE
  3. ALLEGRA [Concomitant]
     Indication: HYPERSENSITIVITY
  4. PROVIGIL [Concomitant]
     Indication: NARCOLEPSY
  5. LUPRON DEPOT [Suspect]
     Indication: DYSMENORRHOEA
     Dates: start: 20101101
  6. NEXIUM [Concomitant]
     Indication: PRODUCT USED FOR UNKNOWN INDICATION

REACTIONS (3)
  - CYST [None]
  - DERMAL CYST [None]
  - PAIN [None]
